FAERS Safety Report 7532907-0 (Version None)
Quarter: 2011Q2

REPORT INFORMATION
  Report Type: 
  Country: None (occurrence: None)
  Receive Date: 20110608
  Receipt Date: 20110601
  Transmission Date: 20111010
  Serious: No
  Sender: FDA-Public Use
  Company Number: US-PFIZER INC-2011119113

PATIENT
  Sex: Female
  Weight: 45.4 kg

DRUGS (2)
  1. GENOTROPIN [Suspect]
     Indication: GROWTH HORMONE DEFICIENCY
     Dosage: UNK
     Dates: start: 20090101
  2. BENADRYL [Concomitant]
     Dosage: UNK, AS NEEDED

REACTIONS (1)
  - WEIGHT INCREASED [None]
